FAERS Safety Report 6399176-9 (Version None)
Quarter: 2009Q4

REPORT INFORMATION
  Report Type: 
  Country: None (occurrence: None)
  Receive Date: 20091008
  Receipt Date: 20090923
  Transmission Date: 20100525
  Serious: Yes (Other)
  Sender: FDA-Public Use
  Company Number: 8052470

PATIENT
  Sex: Male
  Weight: 75 kg

DRUGS (6)
  1. KEPPRA [Suspect]
     Indication: EPILEPSY
     Dosage: 500 MG 2/D
  2. KEPPRA [Suspect]
     Indication: SUBDURAL HAEMATOMA
     Dosage: 500 MG 2/D
  3. ERGENYL CHRONO [Concomitant]
  4. MOLSIHEXAL [Concomitant]
  5. LASIX [Concomitant]
  6. NOVODIGAL [Concomitant]

REACTIONS (2)
  - COUGH [None]
  - INCREASED VISCOSITY OF BRONCHIAL SECRETION [None]
